FAERS Safety Report 19465383 (Version 1)
Quarter: 2021Q2

REPORT INFORMATION
  Report Type: Spontaneous
  Country: FR (occurrence: FR)
  Receive Date: 20210624
  Receipt Date: 20210624
  Transmission Date: 20210717
  Serious: Yes (Hospitalization)
  Sender: FDA-Public Use
  Company Number: FR-TAKEDA-2021TUS039086

PATIENT
  Age: 41 Year
  Sex: Female

DRUGS (3)
  1. LEVOCETIRIZINE EG [Concomitant]
     Indication: HYPERSENSITIVITY
     Dosage: UNK
     Route: 048
  2. ENTYVIO [Suspect]
     Active Substance: VEDOLIZUMAB
     Indication: CROHN^S DISEASE
     Dosage: 300 MILLIGRAM, Q8WEEKS
     Route: 042
     Dates: start: 20161003
  3. PARACETAMOL [Concomitant]
     Active Substance: ACETAMINOPHEN
     Indication: PAIN
     Dosage: UNK
     Route: 048

REACTIONS (1)
  - Ovarian vein thrombosis [Recovering/Resolving]

NARRATIVE: CASE EVENT DATE: 20210302
